FAERS Safety Report 4689166-6 (Version None)
Quarter: 2005Q2

REPORT INFORMATION
  Report Type: 
  Country: None (occurrence: None)
  Receive Date: 20050613
  Receipt Date: 20050601
  Transmission Date: 20051028
  Serious: Yes (Other)
  Sender: FDA-Public Use
  Company Number: 2005UW08696

PATIENT
  Age: 81 Year
  Sex: Female
  Weight: 63.6 kg

DRUGS (6)
  1. PRILOSEC OTC [Suspect]
     Indication: DYSPEPSIA
     Route: 048
     Dates: start: 20050531, end: 20050531
  2. ASPIRIN [Concomitant]
  3. LISINOPRIL [Concomitant]
  4. LIPITOR [Concomitant]
  5. NORVASC [Concomitant]
  6. SYNTHROID [Concomitant]

REACTIONS (1)
  - ANAPHYLACTIC SHOCK [None]
